FAERS Safety Report 8777312 (Version 3)
Quarter: 2012Q4

REPORT INFORMATION
  Report Type: 
  Country: US (occurrence: US)
  Receive Date: 20120910
  Receipt Date: 20121031
  Transmission Date: 20130627
  Serious: Yes (Other)
  Sender: FDA-Public Use
  Company Number: US-ASTRAZENECA-2012SE12767

PATIENT
  Age: 81 Year
  Sex: Female

DRUGS (3)
  1. TOPROL XL [Suspect]
     Route: 048
  2. CRESTOR [Suspect]
     Route: 048
  3. CARAFATE [Concomitant]

REACTIONS (8)
  - Ulcer haemorrhage [Unknown]
  - Dyspnoea [Unknown]
  - Palpitations [Unknown]
  - Stress [Unknown]
  - Panic attack [Unknown]
  - Hearing impaired [Unknown]
  - Adverse event [Unknown]
  - Drug dose omission [Unknown]
